FAERS Safety Report 11509777 (Version 1)
Quarter: 2015Q3

REPORT INFORMATION
  Report Type: Spontaneous
  Country: US (occurrence: US)
  Receive Date: 20150915
  Receipt Date: 20150915
  Transmission Date: 20151125
  Serious: No
  Sender: FDA-Public Use
  Company Number: US-JNJFOC-20150710840

PATIENT
  Age: 76 Year
  Sex: Female
  Weight: 63.5 kg

DRUGS (4)
  1. TYLENOL EXTRA STRENGTH [Suspect]
     Active Substance: ACETAMINOPHEN
     Indication: BACK PAIN
     Dosage: 1-2 TABLETS
     Route: 048
     Dates: start: 2007
  2. TYLENOL EXTRA STRENGTH [Suspect]
     Active Substance: ACETAMINOPHEN
     Indication: ARTHRALGIA
     Dosage: 1-2 TABLETS
     Route: 048
     Dates: start: 2007
  3. HEART MEDICATIONS (NOS) [Concomitant]
     Indication: CARDIAC DISORDER
     Route: 065
  4. TYLENOL EXTRA STRENGTH [Suspect]
     Active Substance: ACETAMINOPHEN
     Indication: MUSCULOSKELETAL STIFFNESS
     Dosage: 1-2 TABLETS
     Route: 048
     Dates: start: 2007

REACTIONS (2)
  - Incorrect dose administered [Unknown]
  - Product container issue [Unknown]
